FAERS Safety Report 8464896-9 (Version None)
Quarter: 2012Q2

REPORT INFORMATION
  Report Type: 
  Country: None (occurrence: None)
  Receive Date: 20120626
  Receipt Date: 20120615
  Transmission Date: 20120825
  Serious: Yes (Other)
  Sender: FDA-Public Use
  Company Number: ES-PERRIGO-12ES005197

PATIENT
  Age: 3 Year
  Sex: Male

DRUGS (1)
  1. TESTOSTERONE [Suspect]
     Indication: URETHRAL REPAIR
     Dosage: 25 MG, MONTHLY, 2 INJECTIONS
     Route: 030

REACTIONS (1)
  - GENITAL CYST [None]
